FAERS Safety Report 17785251 (Version 1)
Quarter: 2020Q2

REPORT INFORMATION
  Report Type: Spontaneous
  Country: US (occurrence: US)
  Receive Date: 20200513
  Receipt Date: 20200513
  Transmission Date: 20200714
  Serious: Yes (Death)
  Sender: FDA-Public Use
  Company Number: US-FRESENIUS KABI-FK202004648

PATIENT
  Age: 72 Year
  Sex: Female
  Weight: 70.76 kg

DRUGS (7)
  1. CYCLOPHOSPHAMIDE. [Suspect]
     Active Substance: CYCLOPHOSPHAMIDE
     Indication: DIFFUSE LARGE B-CELL LYMPHOMA
     Route: 042
     Dates: start: 20180712, end: 20180714
  2. VENETOCLAX. [Suspect]
     Active Substance: VENETOCLAX
     Indication: CHEMOTHERAPY
     Route: 065
     Dates: start: 20200206
  3. FLUDARABINE [Suspect]
     Active Substance: FLUDARABINE PHOSPHATE
     Indication: DIFFUSE LARGE B-CELL LYMPHOMA
     Route: 042
     Dates: start: 20180713, end: 20180714
  4. CYCLOPHOSPHAMIDE. [Suspect]
     Active Substance: CYCLOPHOSPHAMIDE
     Indication: B-CELL DEPLETION THERAPY
     Dosage: R-CHOP X 6
     Route: 065
     Dates: start: 2010
  5. AZACITIDINE. [Suspect]
     Active Substance: AZACITIDINE
     Indication: CHEMOTHERAPY
     Route: 065
     Dates: start: 20200206
  6. FLUDARABINE [Suspect]
     Active Substance: FLUDARABINE PHOSPHATE
     Indication: B-CELL DEPLETION THERAPY
  7. LISOCABTAGENE MARALEUCEL. [Suspect]
     Active Substance: LISOCABTAGENE MARALEUCEL
     Indication: DIFFUSE LARGE B-CELL LYMPHOMA
     Dosage: (1 X 10^8 CAR T CELLS, SINGLE)
     Route: 042
     Dates: start: 20180713, end: 20180714

REACTIONS (1)
  - Acute myeloid leukaemia [Fatal]

NARRATIVE: CASE EVENT DATE: 20200123
